FAERS Safety Report 8602504-4 (Version None)
Quarter: 2012Q3

REPORT INFORMATION
  Report Type: 
  Country: None (occurrence: None)
  Receive Date: 20120817
  Receipt Date: 20120809
  Transmission Date: 20120928
  Serious: Yes (Hospitalization)
  Sender: FDA-Public Use
  Company Number: DE-PFIZER INC-2012194895

PATIENT
  Age: 56 Year
  Sex: Female
  Weight: 70 kg

DRUGS (5)
  1. BLINDED THERAPY [Suspect]
     Indication: COLORECTAL CANCER METASTATIC
     Dosage: CYCLIC (EVERY 14 DAYS)
     Route: 042
     Dates: start: 20120619
  2. LEUCOVORIN CALCIUM [Suspect]
     Indication: COLORECTAL CANCER METASTATIC
     Dosage: 400 MG/M2, CYCLIC (DAY 1 EVERY 14 DAYS)
     Route: 042
     Dates: start: 20120619
  3. FLUOROURACIL [Suspect]
     Dosage: 2400 MG/M2, CYCLIC (ON DAYS 1 AND 2 EVERY 14 DAYS)
     Route: 042
     Dates: start: 20120619
  4. FLUOROURACIL [Suspect]
     Indication: COLORECTAL CANCER METASTATIC
     Dosage: 400 MG/M2 ON DAY 1
     Route: 040
     Dates: start: 20120619
  5. IRINOTECAN HCL [Suspect]
     Indication: COLORECTAL CANCER METASTATIC
     Dosage: 180 MG/M2, CYCLIC (DAY 1 EVERY 14 DAYS)
     Route: 042
     Dates: start: 20120619

REACTIONS (1)
  - CHOLESTASIS [None]
